FAERS Safety Report 6421666-0 (Version None)
Quarter: 2009Q4

REPORT INFORMATION
  Report Type: 
  Country: None (occurrence: None)
  Receive Date: 20091029
  Receipt Date: 20091029
  Transmission Date: 20100525
  Serious: No
  Sender: FDA-Public Use
  Company Number: None

PATIENT
  Sex: Female
  Weight: 17.2367 kg

DRUGS (1)
  1. PHENOBARBITAL 65 MG/ML BAXTER [Suspect]
     Indication: GRAND MAL CONVULSION
     Dosage: 150 MG X 1 IV
     Route: 042
     Dates: start: 20091013, end: 20091013

REACTIONS (2)
  - INFUSION SITE RASH [None]
  - RASH GENERALISED [None]
